FAERS Safety Report 10256038 (Version 1)
Quarter: 2014Q2

REPORT INFORMATION
  Report Type: Spontaneous
  Country: US (occurrence: US)
  Receive Date: 20140624
  Receipt Date: 20140624
  Transmission Date: 20141212
  Serious: No
  Sender: FDA-Public Use
  Company Number: US-ZOGENIX, INC.-2012ZX000055

PATIENT
  Age: 46 Year
  Sex: Female
  Weight: 72.64 kg

DRUGS (4)
  1. SUMAVEL DOSEPRO [Suspect]
     Indication: MIGRAINE
     Dates: start: 20120128
  2. TREXIMET [Concomitant]
     Indication: MIGRAINE
     Route: 048
  3. PROMETHAZINE [Concomitant]
     Indication: NAUSEA
  4. BENADRYL [Concomitant]
     Indication: PRODUCT USED FOR UNKNOWN INDICATION
     Route: 048

REACTIONS (6)
  - Migraine [Recovered/Resolved]
  - Nausea [Recovered/Resolved]
  - Vomiting [Recovered/Resolved]
  - Saliva altered [Recovered/Resolved]
  - Hyperacusis [Recovered/Resolved]
  - Hangover [Recovered/Resolved]
